FAERS Safety Report 25818411 (Version 1)
Quarter: 2025Q3

REPORT INFORMATION
  Report Type: Spontaneous
  Country: US (occurrence: None)
  Receive Date: 20250918
  Receipt Date: 20250918
  Transmission Date: 20251020
  Serious: Yes (Life-Threatening)
  Sender: FDA-CTU
  Company Number: None

PATIENT
  Age: 52 Year
  Sex: Female
  Weight: 53.8 kg

DRUGS (1)
  1. PEMIVIBART [Suspect]
     Active Substance: PEMIVIBART
     Indication: Prophylaxis
     Route: 041
     Dates: start: 20250917, end: 20250917

REACTIONS (4)
  - Paraesthesia oral [None]
  - Paraesthesia oral [None]
  - Throat tightness [None]
  - Dyspnoea [None]

NARRATIVE: CASE EVENT DATE: 20250917
